FAERS Safety Report 10387926 (Version 1)
Quarter: 2014Q3

REPORT INFORMATION
  Report Type: Spontaneous
  Country: JP (occurrence: JP)
  Receive Date: 20140815
  Receipt Date: 20140815
  Transmission Date: 20150326
  Serious: No
  Sender: FDA-Public Use
  Company Number: PHHY2013JP161258

PATIENT

DRUGS (3)
  1. CLARITH [Concomitant]
     Active Substance: CLARITHROMYCIN
  2. GASTER [Concomitant]
     Active Substance: FAMOTIDINE
  3. TASIGNA [Suspect]
     Active Substance: NILOTINIB
     Dosage: 600 MG, DAILY
     Dates: start: 20131106

REACTIONS (5)
  - Rash [Recovering/Resolving]
  - Haemoglobin decreased [Unknown]
  - Platelet count decreased [Unknown]
  - Blood lactate dehydrogenase decreased [Unknown]
  - Fatigue [Unknown]

NARRATIVE: CASE EVENT DATE: 20131112
